FAERS Safety Report 6380260-0 (Version None)
Quarter: 2009Q3

REPORT INFORMATION
  Report Type: 
  Country: None (occurrence: None)
  Receive Date: 20090929
  Receipt Date: 20090917
  Transmission Date: 20100115
  Serious: Yes (Hospitalization, Other)
  Sender: FDA-Public Use
  Company Number: NO-ROCHE-644352

PATIENT
  Age: 37 Year
  Sex: Male

DRUGS (6)
  1. CELLCEPT [Suspect]
     Route: 065
  2. CELLCEPT [Suspect]
     Route: 065
  3. PREDNISOLONE [Suspect]
     Route: 065
  4. PREDNISOLONE [Suspect]
     Route: 065
  5. TACROLIMUS [Suspect]
     Route: 065
     Dates: start: 20060101, end: 20080101
  6. BASILIXIMAB [Concomitant]
     Route: 042

REACTIONS (3)
  - BLOOD CREATININE INCREASED [None]
  - HAEMOLYTIC URAEMIC SYNDROME [None]
  - RENAL GRAFT LOSS [None]
